FAERS Safety Report 12917106 (Version 3)
Quarter: 2018Q4

REPORT INFORMATION
  Report Type: Spontaneous
  Country: US (occurrence: US)
  Receive Date: 20161107
  Receipt Date: 20181113
  Transmission Date: 20190204
  Serious: Yes (Other)
  Sender: FDA-Public Use
  Company Number: US-BAYER-2016-208847

PATIENT
  Sex: Female

DRUGS (1)
  1. MAGNEVIST [Suspect]
     Active Substance: GADOPENTETATE DIMEGLUMINE
     Indication: NUCLEAR MAGNETIC RESONANCE IMAGING
     Dosage: UNK UNK, ONCE

REACTIONS (30)
  - Erythema [None]
  - Joint range of motion decreased [None]
  - Visual impairment [None]
  - Nausea [None]
  - Functional gastrointestinal disorder [None]
  - Appetite disorder [None]
  - Blood immunoglobulin E increased [None]
  - Pruritus [None]
  - Skin discolouration [None]
  - Rash [None]
  - Cognitive disorder [None]
  - Skin burning sensation [None]
  - Hemiparesis [None]
  - Alopecia [None]
  - Arthralgia [None]
  - Gadolinium deposition disease [None]
  - Muscular weakness [None]
  - Bladder dysfunction [None]
  - Skin plaque [None]
  - Headache [None]
  - Gait disturbance [None]
  - Muscle rigidity [None]
  - Dyspnoea [None]
  - Vomiting [None]
  - Skin swelling [None]
  - Food allergy [None]
  - Fluid retention [None]
  - Skin tightness [None]
  - Skin hypertrophy [None]
  - Urticaria [None]
